FAERS Safety Report 11102608 (Version 1)
Quarter: 2015Q2

REPORT INFORMATION
  Report Type: Spontaneous
  Country: DE (occurrence: DE)
  Receive Date: 20150511
  Receipt Date: 20150511
  Transmission Date: 20150821
  Serious: Yes (Other)
  Sender: FDA-Public Use
  Company Number: DE-SUN PHARMACEUTICAL INDUSTRIES LTD-2015RR-96794

PATIENT
  Age: 31 Year
  Sex: Female
  Weight: 105 kg

DRUGS (5)
  1. I-THYROXIN [Concomitant]
     Indication: HYPOTHYROIDISM
     Dosage: 75 ?G, DAILY
     Route: 048
     Dates: start: 20140303, end: 20141201
  2. HYDROCHLOROTHIAZIDE. [Suspect]
     Active Substance: HYDROCHLOROTHIAZIDE
     Indication: HYPERTENSION
     Dosage: 12.5 MG, DAILY
     Route: 048
     Dates: start: 20140303, end: 20140804
  3. METHYLDOPA. [Concomitant]
     Active Substance: METHYLDOPA
     Indication: HYPERTENSION
     Dosage: 1000 MG, DAILY
     Route: 048
     Dates: start: 20140805, end: 20141201
  4. FOLSAN [Concomitant]
     Active Substance: FOLIC ACID
     Indication: PROPHYLAXIS OF NEURAL TUBE DEFECT
     Dosage: 0.4 MG, DAILY
     Route: 048
     Dates: start: 20140303, end: 20141201
  5. CANDESARTAN [Suspect]
     Active Substance: CANDESARTAN
     Indication: HYPERTENSION
     Dosage: 16 MG, DAILY
     Route: 048
     Dates: start: 20140303, end: 20140804

REACTIONS (1)
  - Oligohydramnios [Recovered/Resolved]
